FAERS Safety Report 4905304-1 (Version None)
Quarter: 2006Q1

REPORT INFORMATION
  Report Type: 
  Country: None (occurrence: None)
  Receive Date: 20060203
  Receipt Date: 20060123
  Transmission Date: 20060701
  Serious: Yes (Hospitalization)
  Sender: FDA-Public Use
  Company Number: 108863ISR

PATIENT
  Sex: 0

DRUGS (1)
  1. CALCIUM FOLINATE [Suspect]
     Dosage: INTRAVENOUS (NOS)
     Route: 042

REACTIONS (1)
  - HYPOTENSION [None]
